FAERS Safety Report 8523577-3 (Version None)
Quarter: 2012Q3

REPORT INFORMATION
  Report Type: 
  Country: None (occurrence: None)
  Receive Date: 20120716
  Receipt Date: 20120716
  Transmission Date: 20120928
  Serious: Yes (Life-Threatening, Other)
  Sender: FDA-Public Use
  Company Number: None

PATIENT
  Age: 6 Year
  Sex: Female
  Weight: 23.7685 kg

DRUGS (2)
  1. REGLAN [Suspect]
     Indication: NAUSEA
     Dosage: 5 MG QID PO
     Route: 048
     Dates: start: 20120710, end: 20120711
  2. REGLAN [Suspect]
     Indication: GASTRITIS
     Dosage: 5 MG QID PO
     Route: 048
     Dates: start: 20120710, end: 20120711

REACTIONS (2)
  - DYSTONIA [None]
  - TREMOR [None]
